FAERS Safety Report 9416394 (Version 1)
Quarter: 2013Q3

REPORT INFORMATION
  Report Type: Spontaneous
  Country: US (occurrence: US)
  Receive Date: 20130724
  Receipt Date: 20130724
  Transmission Date: 20140515
  Serious: No
  Sender: FDA-Public Use
  Company Number: US-PFIZER INC-2013213209

PATIENT
  Age: 19 Year
  Sex: Male
  Weight: 70.29 kg

DRUGS (1)
  1. FLECTOR [Suspect]
     Indication: ABDOMINAL PAIN
     Dosage: UNK, AS NEEDED
     Route: 062
     Dates: start: 201307

REACTIONS (2)
  - Rash generalised [Not Recovered/Not Resolved]
  - Off label use [Unknown]
